FAERS Safety Report 14106996 (Version 1)
Quarter: 2017Q4

REPORT INFORMATION
  Report Type: Spontaneous
  Country: FR (occurrence: FR)
  Receive Date: 20171019
  Receipt Date: 20171019
  Transmission Date: 20180321
  Serious: Yes (Other)
  Sender: FDA-Public Use
  Company Number: FR-MERCK KGAA-2030689

PATIENT
  Age: 56 Year
  Sex: Female

DRUGS (2)
  1. NOVOTHYROX [Suspect]
     Active Substance: LEVOTHYROXINE SODIUM
     Indication: POST PROCEDURAL HYPOTHYROIDISM
     Dates: start: 20170530
  2. NOVOTHYROX [Suspect]
     Active Substance: LEVOTHYROXINE SODIUM
     Route: 048

REACTIONS (17)
  - Exercise tolerance decreased [None]
  - Sleep disorder [None]
  - Respiratory disorder [None]
  - Amnesia [None]
  - Decreased appetite [None]
  - Tearfulness [None]
  - Muscle spasms [None]
  - Pharyngeal oedema [None]
  - Throat irritation [None]
  - Movement disorder [None]
  - Dizziness [None]
  - Blood thyroid stimulating hormone increased [None]
  - Insomnia [None]
  - Weight increased [None]
  - Eye disorder [None]
  - Pain [None]
  - Impaired driving ability [None]

NARRATIVE: CASE EVENT DATE: 201707
